FAERS Safety Report 26084995 (Version 2)
Quarter: 2025Q4

REPORT INFORMATION
  Report Type: Spontaneous
  Country: CA (occurrence: CA)
  Receive Date: 20251125
  Receipt Date: 20251223
  Transmission Date: 20260117
  Serious: Yes (Other)
  Sender: ROCHE
  Company Number: CA-ROCHE-10000441682

PATIENT
  Age: 35 Year
  Sex: Male

DRUGS (11)
  1. RITUXIMAB [Suspect]
     Active Substance: RITUXIMAB
     Indication: Burkitt^s lymphoma stage I
  2. IFOSFAMIDE [Concomitant]
     Active Substance: IFOSFAMIDE
  3. PREDNISONE [Concomitant]
     Active Substance: PREDNISONE
  4. VINCRISTINE SULFATE [Concomitant]
     Active Substance: VINCRISTINE SULFATE
  5. CISPLATIN [Concomitant]
     Active Substance: CISPLATIN
     Route: 042
  6. CYCLOPHOSPHAMIDE [Concomitant]
     Active Substance: CYCLOPHOSPHAMIDE
  7. CYTARABINE [Concomitant]
     Active Substance: CYTARABINE
     Route: 037
  8. DEXAMETHASONE [Concomitant]
     Active Substance: DEXAMETHASONE
     Route: 047
  9. DOXORUBICIN [Concomitant]
     Active Substance: DOXORUBICIN
  10. ETOPOSIDE [Concomitant]
     Active Substance: ETOPOSIDE
  11. GEMCITABINE HYDROCHLORIDE [Concomitant]
     Active Substance: GEMCITABINE HYDROCHLORIDE

REACTIONS (4)
  - Burkitt^s lymphoma recurrent [Unknown]
  - Therapy partial responder [Unknown]
  - Burkitt^s lymphoma stage IV [Unknown]
  - Central nervous system lymphoma [Unknown]
